FAERS Safety Report 25643966 (Version 1)
Quarter: 2025Q3

REPORT INFORMATION
  Report Type: Spontaneous
  Country: US (occurrence: US)
  Receive Date: 20250805
  Receipt Date: 20250805
  Transmission Date: 20251021
  Serious: No
  Sender: DR REDDYS
  Company Number: US-DRL-USA-USA/2025/07/009993

PATIENT
  Age: 28 Year
  Sex: Female
  Weight: 86 kg

DRUGS (3)
  1. FLUCONAZOLE [Suspect]
     Active Substance: FLUCONAZOLE
     Indication: Fungal infection
     Route: 048
     Dates: start: 20250624, end: 20250701
  2. DOXYCYCLINE [Concomitant]
     Active Substance: DOXYCYCLINE
     Indication: Fungal infection
     Dosage: FOR 14 DAYS
     Route: 048
  3. METRONIDAZOLE [Concomitant]
     Active Substance: METRONIDAZOLE
     Indication: Fungal infection
     Route: 048

REACTIONS (6)
  - Migraine [Not Recovered/Not Resolved]
  - Pyrexia [Recovered/Resolved]
  - Ocular hyperaemia [Unknown]
  - Vomiting [Recovered/Resolved]
  - Fatigue [Unknown]
  - Headache [Unknown]
